FAERS Safety Report 6803872-6 (Version None)
Quarter: 2010Q2

REPORT INFORMATION
  Report Type: 
  Country: None (occurrence: None)
  Receive Date: 20100628
  Receipt Date: 20100618
  Transmission Date: 20101027
  Serious: Yes (Hospitalization)
  Sender: FDA-Public Use
  Company Number: IT-ABBOTT-10P-083-0652823-00

PATIENT
  Sex: Male

DRUGS (9)
  1. TERAPROST TABLETS (HYTRIN) [Suspect]
     Indication: BENIGN PROSTATIC HYPERPLASIA
     Route: 048
     Dates: start: 20100310, end: 20100612
  2. ZESTORETIC [Suspect]
     Indication: HYPERTENSION
     Route: 048
     Dates: start: 20070612, end: 20100612
  3. LASIX [Suspect]
     Indication: HYPERTENSION
     Route: 048
     Dates: start: 20070612, end: 20100612
  4. TICLOPIDINA [Concomitant]
     Indication: DRUG USE FOR UNKNOWN INDICATION
  5. OMEPRAZOLE [Concomitant]
     Indication: DRUG USE FOR UNKNOWN INDICATION
  6. AVODART [Concomitant]
     Indication: DRUG USE FOR UNKNOWN INDICATION
     Route: 048
  7. SIVASTIN [Concomitant]
     Indication: DRUG USE FOR UNKNOWN INDICATION
  8. LENDORMIN [Concomitant]
     Indication: DRUG USE FOR UNKNOWN INDICATION
  9. NITRODERM [Concomitant]
     Indication: DRUG USE FOR UNKNOWN INDICATION

REACTIONS (4)
  - DIZZINESS [None]
  - HYPOTENSION [None]
  - MALAISE [None]
  - SINUS BRADYCARDIA [None]
